FAERS Safety Report 25283337 (Version 1)
Quarter: 2025Q2

REPORT INFORMATION
  Report Type: Spontaneous
  Country: CA (occurrence: CA)
  Receive Date: 20250508
  Receipt Date: 20250508
  Transmission Date: 20250716
  Serious: Yes (Death, Life-Threatening, Hospitalization)
  Sender: PFIZER
  Company Number: CA-PFIZER INC-202500094523

PATIENT
  Age: 82 Year
  Sex: Male
  Weight: 102 kg

DRUGS (17)
  1. HEPARIN SODIUM [Suspect]
     Active Substance: HEPARIN SODIUM
     Indication: Thrombosis prophylaxis
     Dosage: 5000 UNITED STATES PHARMACOPEIA UNIT, 2X/DAY
     Route: 058
  2. ASPIRIN [Suspect]
     Active Substance: ASPIRIN
     Indication: Arteriosclerosis coronary artery
     Dosage: 80 MG, 1X/DAY
     Route: 048
  3. ACETAMINOPHEN [Concomitant]
     Active Substance: ACETAMINOPHEN
  4. ALLOPURINOL [Concomitant]
     Active Substance: ALLOPURINOL
  5. ARANESP [Concomitant]
     Active Substance: DARBEPOETIN ALFA
  6. ATORVASTATIN [Concomitant]
     Active Substance: ATORVASTATIN
     Route: 065
  7. BISOPROLOL [Concomitant]
     Active Substance: BISOPROLOL
     Route: 065
  8. CHOLECALCIFEROL [Concomitant]
     Active Substance: CHOLECALCIFEROL
  9. FUROSEMIDE [Concomitant]
     Active Substance: FUROSEMIDE
  10. HYDRALAZINE [Concomitant]
     Active Substance: HYDRALAZINE HYDROCHLORIDE
  11. LORAZEPAM [Concomitant]
     Active Substance: LORAZEPAM
  12. MELATONIN [Concomitant]
     Active Substance: MELATONIN
  13. VITAMINS NOS [Concomitant]
     Active Substance: VITAMINS
  14. ONDANSETRON [Concomitant]
     Active Substance: ONDANSETRON
  15. POLYETHYLENE GLYCOLS [Concomitant]
     Active Substance: POLYETHYLENE GLYCOLS
  16. SENNOSIDES [Concomitant]
     Active Substance: SENNOSIDES
  17. TAMSULOSIN [Concomitant]
     Active Substance: TAMSULOSIN

REACTIONS (2)
  - Lower gastrointestinal haemorrhage [Fatal]
  - Ulcer [Fatal]
